FAERS Safety Report 5714510-8 (Version None)
Quarter: 2008Q2

REPORT INFORMATION
  Report Type: 
  Country: None (occurrence: None)
  Receive Date: 20080421
  Receipt Date: 20080409
  Transmission Date: 20081010
  Serious: Yes (Hospitalization)
  Sender: FDA-Public Use
  Company Number: 2008AL002182

PATIENT
  Age: 82 Year
  Sex: Female

DRUGS (4)
  1. ACETAMINOPHEN [Suspect]
     Indication: ANALGESIA
     Dosage: 1 G; QID
  2. FLOXACILLIN SODIUM [Concomitant]
  3. RIFAMPICIN [Concomitant]
  4. LEVOFLOXACIN [Concomitant]

REACTIONS (15)
  - ANION GAP INCREASED [None]
  - ATAXIA [None]
  - BLOOD ALBUMIN DECREASED [None]
  - BLOOD ALKALINE PHOSPHATASE INCREASED [None]
  - BLOOD MAGNESIUM DECREASED [None]
  - CONFUSIONAL STATE [None]
  - DEPRESSED LEVEL OF CONSCIOUSNESS [None]
  - METABOLIC ACIDOSIS [None]
  - METABOLIC ENCEPHALOPATHY [None]
  - NAUSEA [None]
  - PSEUDOMONAS INFECTION [None]
  - PYROGLUTAMATE INCREASED [None]
  - STAPHYLOCOCCAL INFECTION [None]
  - URINE ABNORMALITY [None]
  - URINE KETONE BODY PRESENT [None]
